FAERS Safety Report 8216735-9 (Version None)
Quarter: 2012Q1

REPORT INFORMATION
  Report Type: 
  Country: None (occurrence: None)
  Receive Date: 20120316
  Receipt Date: 20120306
  Transmission Date: 20120608
  Serious: Yes (Other)
  Sender: FDA-Public Use
  Company Number: CA-ROCHE-1039992

PATIENT
  Sex: Female

DRUGS (5)
  1. OMALIZUMAB [Suspect]
     Indication: ASTHMA
     Route: 058
     Dates: start: 20111213
  2. ALVESCO [Concomitant]
  3. SYMBICORT [Concomitant]
  4. SINGULAIR [Concomitant]
  5. SODIUM BICARBONATE/SODIUM CHLORIDE [Concomitant]

REACTIONS (3)
  - CYSTIC FIBROSIS [None]
  - PNEUMONIA [None]
  - PRODUCTIVE COUGH [None]
